FAERS Safety Report 25193388 (Version 2)
Quarter: 2025Q3

REPORT INFORMATION
  Report Type: Report from Study
  Country: MY (occurrence: MY)
  Receive Date: 20250414
  Receipt Date: 20250803
  Transmission Date: 20251020
  Serious: Yes (Death)
  Sender: ALEXION PHARMACEUTICALS
  Company Number: MY-AstraZeneca-CH-00846755A

PATIENT
  Age: 59 Year
  Sex: Male

DRUGS (1)
  1. DURVALUMAB [Suspect]
     Active Substance: DURVALUMAB
     Route: 065

REACTIONS (1)
  - Death [Fatal]

NARRATIVE: CASE EVENT DATE: 20250101
